FAERS Safety Report 7628153-2 (Version None)
Quarter: 2011Q3

REPORT INFORMATION
  Report Type: 
  Country: None (occurrence: None)
  Receive Date: 20110720
  Receipt Date: 20110720
  Transmission Date: 20111222
  Serious: Yes (Hospitalization)
  Sender: FDA-Public Use
  Company Number: None

PATIENT
  Sex: Female
  Weight: 57.72 kg

DRUGS (3)
  1. CARBOPLATIN [Suspect]
     Dosage: 485 MG
     Dates: end: 20110623
  2. PACLITAXEL [Suspect]
     Dosage: 282 MG
     Dates: end: 20110623
  3. COUMADIN [Concomitant]

REACTIONS (8)
  - HAEMATEMESIS [None]
  - WHITE BLOOD CELL COUNT DECREASED [None]
  - FEBRILE NEUTROPENIA [None]
  - NEUTROPHIL COUNT DECREASED [None]
  - ABDOMINAL HERNIA [None]
  - INTERNATIONAL NORMALISED RATIO INCREASED [None]
  - ANAEMIA [None]
  - PLATELET COUNT DECREASED [None]
